FAERS Safety Report 9170949 (Version 1)
Quarter: 2013Q1

REPORT INFORMATION
  Report Type: Spontaneous
  Country: US (occurrence: None)
  Receive Date: 20130315
  Receipt Date: 20130315
  Transmission Date: 20140127
  Serious: Yes (Hospitalization)
  Sender: FDA-Public Use
  Company Number: None

PATIENT
  Age: 45 Year
  Sex: Male
  Weight: 98.6 kg

DRUGS (4)
  1. GEMFIBROZIL [Suspect]
     Indication: HYPERLIPIDAEMIA
     Route: 048
     Dates: start: 20121120, end: 20130207
  2. GEMFIBROZIL [Suspect]
     Indication: DIABETES MELLITUS
     Route: 048
     Dates: start: 20121120, end: 20130207
  3. GEMFIBROZIL [Suspect]
     Indication: HYPERTRIGLYCERIDAEMIA
     Route: 048
     Dates: start: 20121120, end: 20130207
  4. GEMFIBROZIL [Suspect]
     Indication: HEPATIC STEATOSIS
     Route: 048
     Dates: start: 20121120, end: 20130207

REACTIONS (5)
  - Rhabdomyolysis [None]
  - Urticaria [None]
  - Pruritus [None]
  - Blood urea increased [None]
  - Blood creatinine increased [None]
